FAERS Safety Report 18254145 (Version 1)
Quarter: 2020Q3

REPORT INFORMATION
  Report Type: Spontaneous
  Country: FR (occurrence: FR)
  Receive Date: 20200910
  Receipt Date: 20200910
  Transmission Date: 20201103
  Serious: Yes (Other)
  Sender: FDA-Public Use
  Company Number: FR-JNJFOC-20200845753

PATIENT
  Age: 23 Year
  Sex: Male

DRUGS (6)
  1. IMOVANE [Suspect]
     Active Substance: ZOPICLONE
     Indication: DRUG ABUSE
     Route: 048
     Dates: start: 2013
  2. CANNABIS [Suspect]
     Active Substance: CANNABIS SATIVA SUBSP. INDICA TOP
     Indication: DRUG ABUSE
     Dosage: NON RENSEIGNEE
     Route: 066
     Dates: end: 202004
  3. ALCOOL [Suspect]
     Active Substance: ALCOHOL
     Indication: ALCOHOL USE
     Dosage: NON RENSEIGNEE
     Route: 065
     Dates: end: 202004
  4. RISPERDAL [Suspect]
     Active Substance: RISPERIDONE
     Indication: DRUG ABUSE
     Dosage: NON RENSEIGNEE
     Route: 048
  5. ATARAX [Suspect]
     Active Substance: HYDROXYZINE HYDROCHLORIDE
     Indication: DRUG ABUSE
     Dosage: NON RENSEIGNEE
     Route: 048
  6. STILNOX [Suspect]
     Active Substance: ZOLPIDEM TARTRATE
     Indication: DRUG ABUSE
     Dosage: NON RENSEIGNEE
     Route: 048

REACTIONS (1)
  - Drug abuse [Not Recovered/Not Resolved]

NARRATIVE: CASE EVENT DATE: 2013
